FAERS Safety Report 12887356 (Version 1)
Quarter: 2016Q4

REPORT INFORMATION
  Report Type: Report from Study
  Country: IT (occurrence: IT)
  Receive Date: 20161026
  Receipt Date: 20161026
  Transmission Date: 20170207
  Serious: Yes (Death, Other)
  Sender: FDA-Public Use
  Company Number: IT-JAZZ-2016-IT-017852

PATIENT
  Age: 19 Year
  Sex: Female
  Weight: 60 kg

DRUGS (7)
  1. AMBISOME [Concomitant]
     Active Substance: AMPHOTERICIN B
     Indication: ANTIFUNGAL PROPHYLAXIS
     Dosage: 65 MG, QD
     Route: 042
     Dates: start: 20160905, end: 20160910
  2. SIROLIMUS. [Concomitant]
     Active Substance: SIROLIMUS
     Indication: PROPHYLAXIS AGAINST GRAFT VERSUS HOST DISEASE
     Dosage: 4 MG, QD
     Route: 048
     Dates: start: 20160902, end: 20160910
  3. TYGACIL [Concomitant]
     Active Substance: TIGECYCLINE
     Indication: ANTIBIOTIC PROPHYLAXIS
     Dosage: 100 MG, QD
     Route: 042
     Dates: start: 20160826, end: 20160910
  4. METHYLPREDNISOLONE. [Concomitant]
     Active Substance: METHYLPREDNISOLONE
     Indication: PROPHYLAXIS AGAINST GRAFT VERSUS HOST DISEASE
     Dosage: 7.5 MG, QD
     Route: 042
     Dates: start: 20160829, end: 20160910
  5. DEFITELIO [Suspect]
     Active Substance: DEFIBROTIDE SODIUM
     Indication: VENOOCCLUSIVE LIVER DISEASE
     Dosage: 25 MG/KG, QD
     Dates: start: 20160905, end: 20160910
  6. ACICLOVIR [Concomitant]
     Active Substance: ACYCLOVIR
     Indication: ANTIVIRAL PROPHYLAXIS
     Dosage: 600 MG, QD
     Route: 042
     Dates: start: 20160905, end: 20160910
  7. MEROPENEM. [Concomitant]
     Active Substance: MEROPENEM
     Indication: ANTIBIOTIC PROPHYLAXIS
     Dosage: 2 G, QD
     Route: 042
     Dates: start: 20160824, end: 20160910

REACTIONS (2)
  - Encephalopathy [Fatal]
  - Renal failure [Recovered/Resolved]

NARRATIVE: CASE EVENT DATE: 2016
